FAERS Safety Report 13481694 (Version 4)
Quarter: 2018Q1

REPORT INFORMATION
  Report Type: Report from Study
  Country: US (occurrence: US)
  Receive Date: 20170424
  Receipt Date: 20180117
  Transmission Date: 20180508
  Serious: No
  Sender: FDA-Public Use
  Company Number: US-AMGEN-USASL2017031662

PATIENT
  Age: 73 Year
  Sex: Female

DRUGS (5)
  1. FARXIGA [Concomitant]
     Active Substance: DAPAGLIFLOZIN PROPANEDIOL
     Indication: DIABETES MELLITUS
  2. NESINA ACT [Concomitant]
  3. REPATHA [Suspect]
     Active Substance: EVOLOCUMAB
     Indication: BLOOD TRIGLYCERIDES INCREASED
     Dosage: 140 MG, Q2WK
     Route: 065
     Dates: start: 201610, end: 20170131
  4. REPATHA [Suspect]
     Active Substance: EVOLOCUMAB
     Indication: HYPERCHOLESTEROLAEMIA
  5. REPATHA [Suspect]
     Active Substance: EVOLOCUMAB
     Indication: LOW DENSITY LIPOPROTEIN INCREASED
     Dosage: 140 MG, QMO
     Route: 065

REACTIONS (3)
  - Rash macular [Recovering/Resolving]
  - Dry skin [Unknown]
  - Fungal infection [Recovering/Resolving]
